FAERS Safety Report 7761852-0 (Version None)
Quarter: 2011Q3

REPORT INFORMATION
  Report Type: 
  Country: None (occurrence: None)
  Receive Date: 20110919
  Receipt Date: 20110919
  Transmission Date: 20111222
  Serious: Yes (Hospitalization, Other)
  Sender: FDA-Public Use
  Company Number: None

PATIENT
  Age: 22 Year
  Sex: Female
  Weight: 46.8 kg

DRUGS (1)
  1. ALEFACEPT ASTELLAS [Suspect]
     Indication: IMMUNOSUPPRESSANT DRUG THERAPY
     Dosage: 15 MG MONTHLY SQ
     Route: 058
     Dates: start: 20101201, end: 20110719

REACTIONS (2)
  - ANAEMIA [None]
  - ESCHERICHIA URINARY TRACT INFECTION [None]
